FAERS Safety Report 5043007-6 (Version None)
Quarter: 2006Q2

REPORT INFORMATION
  Report Type: 
  Country: None (occurrence: None)
  Receive Date: 20060627
  Receipt Date: 20060613
  Transmission Date: 20061013
  Serious: Yes (Other)
  Sender: FDA-Public Use
  Company Number: 2006077872

PATIENT
  Age: 80 Year
  Sex: Female

DRUGS (4)
  1. ZYVOX [Suspect]
     Indication: SKIN INFECTION
     Dosage: 1200 MG, INTRAVENOUS
     Route: 042
     Dates: start: 20060601, end: 20060613
  2. VALERIN (VALPROATE SOIUM) [Concomitant]
  3. INSULIN [Concomitant]
  4. NORVASC [Concomitant]

REACTIONS (1)
  - CONVULSION [None]
